FAERS Safety Report 17452551 (Version 1)
Quarter: 2020Q1

REPORT INFORMATION
  Report Type: Spontaneous
  Country: DE (occurrence: DE)
  Receive Date: 20200224
  Receipt Date: 20200224
  Transmission Date: 20200409
  Serious: Yes (Other)
  Sender: FDA-Public Use
  Company Number: DE-CIRCASSIA PHARMACEUTICALS INC-2020DE001086

PATIENT
  Sex: Female

DRUGS (2)
  1. PREDNISOLONE. [Concomitant]
     Active Substance: PREDNISOLONE
     Indication: PRODUCT USED FOR UNKNOWN INDICATION
     Dosage: 5 MG
     Route: 065
  2. ACLIDINIUM + FORMOTEROL [Suspect]
     Active Substance: ACLIDINIUM BROMIDE\FORMOTEROL FUMARATE
     Indication: CHRONIC OBSTRUCTIVE PULMONARY DISEASE
     Dosage: 340/12 MICROGRAMS ONCE IN THE MORNING AND ONCE IN THE EVENING
     Route: 055

REACTIONS (6)
  - Insomnia [Unknown]
  - Dry mouth [Unknown]
  - Loose tooth [Unknown]
  - Infection [Unknown]
  - Tooth infection [Unknown]
  - Dysphonia [Unknown]
